FAERS Safety Report 4831293-4 (Version None)
Quarter: 2005Q4

REPORT INFORMATION
  Report Type: 
  Country: None (occurrence: None)
  Receive Date: 20051118
  Receipt Date: 20050429
  Transmission Date: 20060501
  Serious: Yes (Hospitalization)
  Sender: FDA-Public Use
  Company Number: 2005PK00762

PATIENT
  Age: 67 Year
  Sex: Female

DRUGS (5)
  1. OMEPRAZOLE [Interacting]
     Indication: GASTRODUODENAL ULCER
     Route: 048
     Dates: start: 20041001, end: 20041104
  2. METOPROLOL [Interacting]
     Indication: HYPERTENSION
     Route: 048
     Dates: start: 20041001, end: 20041108
  3. CIPRAMIL [Interacting]
     Indication: DEPRESSION
     Route: 048
     Dates: start: 20041001, end: 20041104
  4. CIPRAMIL [Interacting]
     Route: 048
     Dates: start: 20041105, end: 20041109
  5. DELIX [Suspect]
     Indication: HYPERTENSION
     Route: 048
     Dates: start: 20041001, end: 20041105

REACTIONS (3)
  - DRUG INTERACTION [None]
  - INAPPROPRIATE ANTIDIURETIC HORMONE SECRETION [None]
  - LOSS OF CONSCIOUSNESS [None]
